FAERS Safety Report 11058165 (Version 1)
Quarter: 2015Q2

REPORT INFORMATION
  Report Type: Spontaneous
  Country: CA (occurrence: CA)
  Receive Date: 20150423
  Receipt Date: 20150423
  Transmission Date: 20150821
  Serious: Yes (Other)
  Sender: FDA-Public Use
  Company Number: CA-ROCHE-1566830

PATIENT
  Age: 59 Year
  Sex: Male

DRUGS (4)
  1. DEXAMETHAZONE [Concomitant]
     Active Substance: DEXAMETHASONE
  2. RANITIDINE [Concomitant]
     Active Substance: RANITIDINE\RANITIDINE HYDROCHLORIDE
  3. ZELBORAF [Suspect]
     Active Substance: VEMURAFENIB
     Indication: PRODUCT USED FOR UNKNOWN INDICATION
     Dosage: DOSAGE UNKNOWN
     Route: 065
     Dates: start: 201404, end: 201406
  4. ZELBORAF [Suspect]
     Active Substance: VEMURAFENIB
     Dosage: DOSAGE UNKNOWN
     Route: 065
     Dates: start: 201411, end: 20150313

REACTIONS (5)
  - Brain neoplasm [Unknown]
  - Vitreous floaters [Unknown]
  - Metastases to adrenals [Unknown]
  - Drug ineffective [Unknown]
  - Seizure [Unknown]

NARRATIVE: CASE EVENT DATE: 201406
